FAERS Safety Report 24782297 (Version 2)
Quarter: 2025Q1

REPORT INFORMATION
  Report Type: Spontaneous
  Country: JP (occurrence: JP)
  Receive Date: 20241227
  Receipt Date: 20250129
  Transmission Date: 20250409
  Serious: Yes (Other)
  Sender: ROCHE
  Company Number: JP-ROCHE-10000167161

PATIENT
  Age: 50 Year
  Sex: Female

DRUGS (1)
  1. XOFLUZA [Suspect]
     Active Substance: BALOXAVIR MARBOXIL
     Indication: Product used for unknown indication
     Route: 048

REACTIONS (1)
  - Colitis ischaemic [Recovered/Resolved]
